FAERS Safety Report 24827112 (Version 1)
Quarter: 2025Q1

REPORT INFORMATION
  Report Type: Spontaneous
  Country: US (occurrence: US)
  Receive Date: 20250109
  Receipt Date: 20250109
  Transmission Date: 20250409
  Serious: Yes (Hospitalization)
  Sender: LUNDBECK
  Company Number: US-LUNDBECK-DKLU4006333

PATIENT

DRUGS (6)
  1. SABRIL [Suspect]
     Active Substance: VIGABATRIN
     Indication: Lennox-Gastaut syndrome
     Dosage: 500MG AT 7AM
  2. SABRIL [Suspect]
     Active Substance: VIGABATRIN
     Dosage: 500MG AT NOON
  3. SABRIL [Suspect]
     Active Substance: VIGABATRIN
     Dosage: 500MG AT 6PM
  4. SABRIL [Suspect]
     Active Substance: VIGABATRIN
     Dosage: 1000MG AT 10.30PM
  5. EPIDIOLEX [Concomitant]
     Active Substance: CANNABIDIOL
     Indication: Product used for unknown indication
  6. XCOPRI [Concomitant]
     Active Substance: CENOBAMATE
     Indication: Product used for unknown indication

REACTIONS (1)
  - Seizure [Recovered/Resolved]
